FAERS Safety Report 16745360 (Version 1)
Quarter: 2019Q3

REPORT INFORMATION
  Report Type: Spontaneous
  Country: US (occurrence: US)
  Receive Date: 20190827
  Receipt Date: 20190827
  Transmission Date: 20191005
  Serious: No
  Sender: FDA-Public Use
  Company Number: US-HIKMA PHARMACEUTICALS USA INC.-US-H14001-19-00672

PATIENT
  Sex: Female
  Weight: 62.2 kg

DRUGS (1)
  1. METOHOTREXATE [Suspect]
     Active Substance: METHOTREXATE
     Indication: PRODUCT USED FOR UNKNOWN INDICATION
     Route: 048

REACTIONS (5)
  - Gait disturbance [Unknown]
  - Finger deformity [Unknown]
  - Pain in extremity [Unknown]
  - Pain [Unknown]
  - Basedow^s disease [Unknown]
